FAERS Safety Report 14997274 (Version 4)
Quarter: 2019Q1

REPORT INFORMATION
  Report Type: Spontaneous
  Country: AT (occurrence: AT)
  Receive Date: 20180611
  Receipt Date: 20190130
  Transmission Date: 20190417
  Serious: Yes (Other)
  Sender: FDA-Public Use
  Company Number: AT-MYLANLABS-2018M1037733

PATIENT
  Age: 57 Year
  Sex: Male

DRUGS (8)
  1. PEMETREXED. [Suspect]
     Active Substance: PEMETREXED
     Indication: LUNG ADENOCARCINOMA STAGE IV
     Dosage: UNK
     Route: 065
     Dates: start: 201508
  2. DOCETAXEL. [Suspect]
     Active Substance: DOCETAXEL
     Indication: NON-SMALL CELL LUNG CANCER
     Dosage: UNK, QW
     Route: 042
     Dates: start: 201508
  3. VARGATEF [Suspect]
     Active Substance: NINTEDANIB
     Dosage: 150 MG, QD (300 MG)
     Route: 065
     Dates: end: 201605
  4. DOCETAXEL. [Suspect]
     Active Substance: DOCETAXEL
     Indication: NON-SMALL CELL LUNG CANCER
  5. CISPLATIN. [Suspect]
     Active Substance: CISPLATIN
     Indication: LUNG ADENOCARCINOMA STAGE IV
     Dosage: UNK
     Route: 065
     Dates: start: 201508
  6. VARGATEF [Suspect]
     Active Substance: NINTEDANIB
     Indication: NON-SMALL CELL LUNG CANCER
     Dosage: 200 MG, QD,400 MG
     Route: 065
     Dates: start: 201508
  7. VARGATEF [Suspect]
     Active Substance: NINTEDANIB
     Dosage: 200 MG, UNK, 400 MG
     Route: 065
  8. DOCETAXEL. [Suspect]
     Active Substance: DOCETAXEL
     Indication: DISEASE PROGRESSION
     Dosage: UNK

REACTIONS (7)
  - Polyneuropathy [Unknown]
  - Alopecia [Unknown]
  - Nail disorder [Unknown]
  - Diarrhoea [Unknown]
  - Disease progression [Unknown]
  - Nausea [Unknown]
  - Non-small cell lung cancer [Unknown]

NARRATIVE: CASE EVENT DATE: 201508
